FAERS Safety Report 24307009 (Version 1)
Quarter: 2024Q3

REPORT INFORMATION
  Report Type: Spontaneous
  Country: US (occurrence: None)
  Receive Date: 20240910
  Receipt Date: 20240910
  Transmission Date: 20241017
  Serious: Yes (Hospitalization)
  Sender: Public
  Company Number: None

PATIENT
  Age: 74 Year
  Sex: Male

DRUGS (2)
  1. TERIPARATIDE ACETATE [Suspect]
     Active Substance: TERIPARATIDE ACETATE
     Indication: Senile osteoporosis
     Dosage: 20MCG DAILY SUBCUTANEOUS
     Route: 058
     Dates: start: 202405
  2. ANTIBIOTICS [Concomitant]

REACTIONS (5)
  - Renal pain [None]
  - Muscular weakness [None]
  - Dysstasia [None]
  - Kidney infection [None]
  - Urinary tract infection [None]

NARRATIVE: CASE EVENT DATE: 20240806
